FAERS Safety Report 8305255-9 (Version None)
Quarter: 2012Q2

REPORT INFORMATION
  Report Type: 
  Country: None (occurrence: None)
  Receive Date: 20120423
  Receipt Date: 20120412
  Transmission Date: 20120825
  Serious: Yes (Other)
  Sender: FDA-Public Use
  Company Number: US-ASTRAZENECA-2012SE24415

PATIENT
  Age: 21255 Day
  Sex: Male

DRUGS (1)
  1. SYMBICORT [Suspect]
     Route: 055

REACTIONS (4)
  - MEMORY IMPAIRMENT [None]
  - CEREBROVASCULAR ACCIDENT [None]
  - DYSGRAPHIA [None]
  - CONFUSIONAL STATE [None]
